FAERS Safety Report 19096871 (Version 1)
Quarter: 2021Q2

REPORT INFORMATION
  Report Type: Spontaneous
  Country: US (occurrence: US)
  Receive Date: 20210405
  Receipt Date: 20210405
  Transmission Date: 20210717
  Serious: Yes (Hospitalization)
  Sender: FDA-Public Use
  Company Number: None

PATIENT
  Age: 58 Year
  Sex: Female
  Weight: 49 kg

DRUGS (7)
  1. EKG [Concomitant]
     Dates: start: 20210404, end: 20210404
  2. REGLAN [Concomitant]
     Active Substance: METOCLOPRAMIDE HYDROCHLORIDE
     Dates: start: 20210404, end: 20210404
  3. ZOFRAN [Concomitant]
     Active Substance: ONDANSETRON HYDROCHLORIDE
     Dates: start: 20210404, end: 20210404
  4. HYDROMORPHONE (DILAUDID) [Concomitant]
     Dates: start: 20210404, end: 20210404
  5. TEMOZOLOMIDE (TMZ) [Suspect]
     Active Substance: TEMOZOLOMIDE
     Indication: GASTROINTESTINAL STROMAL TUMOUR
     Route: 048
     Dates: start: 20210402, end: 20210404
  6. HALDOL (HALOPERIDOL LACTATE) [Concomitant]
     Active Substance: HALOPERIDOL LACTATE
     Dates: start: 20210404, end: 20210404
  7. LACTATED RINGERS (LR) BOLUS 1,000 ML [Concomitant]
     Dates: start: 20210404, end: 20210404

REACTIONS (4)
  - Pollakiuria [None]
  - Abdominal tenderness [None]
  - Nausea [None]
  - Vomiting [None]

NARRATIVE: CASE EVENT DATE: 20210404
